FAERS Safety Report 5122268-9 (Version None)
Quarter: 2006Q4

REPORT INFORMATION
  Report Type: 
  Country: None (occurrence: None)
  Receive Date: 20061003
  Receipt Date: 20060920
  Transmission Date: 20070319
  Serious: Yes (Other)
  Sender: FDA-Public Use
  Company Number: 230230

PATIENT
  Age: 72 Year
  Sex: Male

DRUGS (1)
  1. RITUXAN [Suspect]
     Indication: WALDENSTROM'S MACROGLOBULINAEMIA

REACTIONS (4)
  - ESCHAR [None]
  - NASAL NECROSIS [None]
  - SKIN EXFOLIATION [None]
  - SOFT TISSUE DISORDER [None]
